FAERS Safety Report 7200584-4 (Version None)
Quarter: 2010Q4

REPORT INFORMATION
  Report Type: 
  Country: None (occurrence: None)
  Receive Date: 20101228
  Receipt Date: 20101216
  Transmission Date: 20110411
  Serious: Yes (Hospitalization)
  Sender: FDA-Public Use
  Company Number: BE-PFIZER INC-BE-WYE-H14149110

PATIENT
  Age: 47 Year
  Sex: Female
  Weight: 90 kg

DRUGS (11)
  1. BOSUTINIB [Suspect]
     Indication: BREAST CANCER
     Dosage: 300 MG, 1X/DAY
     Route: 048
     Dates: start: 20100111, end: 20100308
  2. EXEMESTANE [Suspect]
     Indication: BREAST CANCER
     Dosage: 25 MG, 1X/DAY
     Route: 048
     Dates: start: 20100111, end: 20100308
  3. EXEMESTANE [Suspect]
  4. EXEMESTANE [Suspect]
  5. EXEMESTANE [Suspect]
  6. LYSOMUCIL [Concomitant]
     Dosage: UNK
     Route: 065
     Dates: start: 19950101
  7. ALDACTAZINE [Concomitant]
     Route: 048
  8. BISOPROLOL FUMARATE [Concomitant]
     Dosage: UNK
     Route: 048
     Dates: start: 20070101
  9. DEXPANTHENOL [Concomitant]
     Dosage: UNK
     Route: 065
     Dates: start: 20080101
  10. DAFALGAN [Concomitant]
     Dosage: UNK
     Route: 065
     Dates: start: 20090101
  11. TRAMADOL HYDROCHLORIDE AND ACETAMINOPHEN [Concomitant]
     Dosage: UNK
     Route: 065
     Dates: start: 20090101

REACTIONS (1)
  - DIABETES MELLITUS [None]
